FAERS Safety Report 8832869 (Version 1)
Quarter: 2012Q4

REPORT INFORMATION
  Report Type: Spontaneous
  Country: US (occurrence: None)
  Receive Date: 20121009
  Receipt Date: 20121009
  Transmission Date: 20130627
  Serious: Yes (Disabling)
  Sender: FDA-Public Use
  Company Number: None

PATIENT
  Age: 31 Year
  Sex: Female
  Weight: 54.43 kg

DRUGS (2)
  1. MIRCETTE [Suspect]
     Indication: BIRTH CONTROL
     Dosage: 28 day tablets
     Dates: start: 20120624, end: 20120708
  2. AMOXICILLIN [Suspect]
     Dosage: 10 day supply
     Dates: start: 20120215, end: 20120225

REACTIONS (2)
  - Meningitis [None]
  - Product contamination [None]
